FAERS Safety Report 7346880-1 (Version None)
Quarter: 2011Q1

REPORT INFORMATION
  Report Type: 
  Country: None (occurrence: None)
  Receive Date: 20110311
  Receipt Date: 20110304
  Transmission Date: 20110831
  Serious: Yes (Hospitalization, Other)
  Sender: FDA-Public Use
  Company Number: US-JNJFOC-20110303087

PATIENT
  Sex: Female
  Weight: 92.99 kg

DRUGS (7)
  1. DURAGESIC-50 [Suspect]
     Indication: ARTHRALGIA
     Route: 062
  2. MORPHINE [Concomitant]
     Indication: BREAKTHROUGH PAIN
     Route: 048
  3. ATENOLOL [Concomitant]
     Indication: BLOOD PRESSURE
     Route: 048
  4. LANTUS [Concomitant]
     Indication: DIABETES MELLITUS
     Route: 058
  5. AMARYL [Concomitant]
     Indication: DIABETES MELLITUS
     Route: 048
  6. HUMALOG [Concomitant]
     Indication: DIABETES MELLITUS
     Route: 058
  7. KADIAN [Concomitant]
     Indication: BREAKTHROUGH PAIN
     Route: 048

REACTIONS (5)
  - FALL [None]
  - HIP FRACTURE [None]
  - PLATELET COUNT DECREASED [None]
  - PRODUCT QUALITY ISSUE [None]
  - PAIN [None]
